FAERS Safety Report 6568713-3 (Version None)
Quarter: 2010Q1

REPORT INFORMATION
  Report Type: 
  Country: None (occurrence: None)
  Receive Date: 20100203
  Receipt Date: 20100128
  Transmission Date: 20100710
  Serious: Yes (Death, Other)
  Sender: FDA-Public Use
  Company Number: PHHY2010FR05495

PATIENT
  Age: 43 Year
  Sex: Male

DRUGS (2)
  1. CYCLOSPORINE [Suspect]
     Indication: RENAL TRANSPLANT
     Dosage: UNK
     Dates: start: 19900301
  2. MYCOPHENOLATE MOFETIL [Suspect]
     Indication: RENAL TRANSPLANT
     Dosage: UNK
     Dates: start: 19900301

REACTIONS (6)
  - ANAPLASTIC LARGE CELL LYMPHOMA T- AND NULL-CELL TYPES [None]
  - KIDNEY TRANSPLANT REJECTION [None]
  - NEOPLASM SKIN [None]
  - OEDEMA PERIPHERAL [None]
  - SEPSIS [None]
  - TUMOUR EXCISION [None]
